FAERS Safety Report 15331311 (Version 1)
Quarter: 2018Q3

REPORT INFORMATION
  Report Type: Spontaneous
  Country: US (occurrence: US)
  Receive Date: 20180824
  Receipt Date: 20180824
  Transmission Date: 20181010
  Serious: No
  Sender: FDA-Public Use
  Company Number: None

PATIENT
  Sex: Female
  Weight: 34.93 kg

DRUGS (1)
  1. METHOTREXATE TAB 2.5 GENERIC [Suspect]
     Active Substance: METHOTREXATE
     Indication: RHEUMATOID ARTHRITIS
     Dosage: 3 TABS QWK PO
     Route: 048
     Dates: start: 201806

REACTIONS (1)
  - Malaise [None]
